FAERS Safety Report 9863691 (Version 2)
Quarter: 2014Q1

REPORT INFORMATION
  Report Type: Report from Study
  Country: AR (occurrence: AR)
  Receive Date: 20140203
  Receipt Date: 20140207
  Transmission Date: 20141002
  Serious: Yes (Hospitalization, Other)
  Sender: FDA-Public Use
  Company Number: AR-JNJFOC-20140117118

PATIENT
  Age: 60 Year
  Sex: Female

DRUGS (6)
  1. IBRUTINIB [Suspect]
     Indication: LYMPHOCYTIC LYMPHOMA
     Dosage: MED KIT 69015
     Route: 048
     Dates: start: 20140109
  2. IBRUTINIB [Suspect]
     Indication: CHRONIC LYMPHOCYTIC LEUKAEMIA
     Dosage: MED KIT 69015
     Route: 048
     Dates: start: 20140109
  3. BENDAMUSTINE [Suspect]
     Indication: LYMPHOCYTIC LYMPHOMA
     Route: 042
     Dates: start: 20140109
  4. BENDAMUSTINE [Suspect]
     Indication: CHRONIC LYMPHOCYTIC LEUKAEMIA
     Route: 042
     Dates: start: 20140109
  5. RITUXIMAB [Suspect]
     Indication: LYMPHOCYTIC LYMPHOMA
     Route: 042
     Dates: start: 20140108
  6. RITUXIMAB [Suspect]
     Indication: CHRONIC LYMPHOCYTIC LEUKAEMIA
     Route: 042
     Dates: start: 20140108

REACTIONS (1)
  - Excessive granulation tissue [Recovered/Resolved]
